FAERS Safety Report 5501819-6 (Version None)
Quarter: 2007Q4

REPORT INFORMATION
  Report Type: 
  Country: None (occurrence: None)
  Receive Date: 20071018
  Receipt Date: 20070828
  Transmission Date: 20080405
  Serious: Yes (Other)
  Sender: FDA-Public Use
  Company Number: PHEH2007US11775

PATIENT
  Sex: Male

DRUGS (5)
  1. EXFORGE [Suspect]
     Dosage: ^5/300MG^
     Dates: start: 20070719
  2. METFORMIN HCL [Concomitant]
  3. ADVAIR DISKUS 100/50 [Concomitant]
  4. FLUCYTOSINE (FLUCYTOSINE) [Concomitant]
  5. ANTIBIOTICS (NO INGREDIENTS/SUBSTANCES) [Concomitant]

REACTIONS (4)
  - BLOOD GLUCOSE INCREASED [None]
  - COUGH [None]
  - MALAISE [None]
  - NASOPHARYNGITIS [None]
